FAERS Safety Report 5807060-1 (Version None)
Quarter: 2008Q3

REPORT INFORMATION
  Report Type: 
  Country: None (occurrence: None)
  Receive Date: 20080711
  Receipt Date: 20011030
  Transmission Date: 20090109
  Serious: Yes (Other)
  Sender: FDA-Public Use
  Company Number: US-BAXTER-2007BH008864

PATIENT
  Age: 20 Year
  Sex: Female

DRUGS (3)
  1. LACTATED RINGER'S [Suspect]
     Indication: DEHYDRATION
     Route: 042
     Dates: start: 20011016, end: 20011017
  2. LACTATED RINGER'S [Suspect]
     Route: 042
     Dates: start: 20011016, end: 20011017
  3. PITOCIN [Concomitant]
     Indication: LABOUR STIMULATION
     Route: 042
     Dates: start: 20011018, end: 20011018

REACTIONS (2)
  - HYPERSENSITIVITY [None]
  - VOMITING [None]
